FAERS Safety Report 6789763-8 (Version None)
Quarter: 2010Q2

REPORT INFORMATION
  Report Type: 
  Country: None (occurrence: None)
  Receive Date: 20100624
  Receipt Date: 20100614
  Transmission Date: 20101027
  Serious: Yes (Other)
  Sender: FDA-Public Use
  Company Number: PE-PFIZER INC-2010075326

PATIENT
  Age: 59 Year
  Sex: Female

DRUGS (1)
  1. XANAX [Suspect]
     Dosage: 0.5 MG, 1X/DAY
     Route: 048
     Dates: start: 20100101

REACTIONS (1)
  - RECTAL HAEMORRHAGE [None]
